FAERS Safety Report 5383614-4 (Version None)
Quarter: 2007Q3

REPORT INFORMATION
  Report Type: 
  Country: None (occurrence: None)
  Receive Date: 20070706
  Receipt Date: 20070621
  Transmission Date: 20080115
  Serious: Yes (Life-Threatening, Hospitalization)
  Sender: FDA-Public Use
  Company Number: URSO-2007-143

PATIENT
  Age: 47 Year
  Sex: Male

DRUGS (6)
  1. DELURSAN (URSODEOXYCHOLIC ACID) [Suspect]
     Dosage: 500 MG ORAL
     Route: 048
     Dates: end: 20061219
  2. ALLOPURINOL [Suspect]
     Dosage: 100 MG ORAL
     Route: 048
     Dates: end: 20061219
  3. CERTICAN (EVEROLIMUS) [Suspect]
     Dosage: 1.5 MG ORAL
     Route: 048
     Dates: start: 20061116, end: 20061126
  4. CYCLOSPORINE [Suspect]
     Dosage: 150 MG ORAL
     Route: 048
     Dates: end: 20061116
  5. ASPEGIC (DL-LYSINE ACETYLSALICYLATE) [Suspect]
     Dosage: 100 MG ORAL
     Route: 048
     Dates: end: 20061219
  6. IMURAN [Suspect]
     Dosage: 100 MG ORAL
     Route: 048
     Dates: end: 20061219

REACTIONS (7)
  - DRUG TOXICITY [None]
  - LUNG INFECTION PSEUDOMONAL [None]
  - OEDEMA PERIPHERAL [None]
  - PANCYTOPENIA [None]
  - PNEUMONIA [None]
  - RASH [None]
  - RENAL FAILURE ACUTE [None]
